FAERS Safety Report 9401093 (Version 1)
Quarter: 2013Q3

REPORT INFORMATION
  Report Type: Spontaneous
  Country: FR (occurrence: FR)
  Receive Date: 20130715
  Receipt Date: 20130715
  Transmission Date: 20140515
  Serious: Yes (Death, Hospitalization)
  Sender: FDA-Public Use
  Company Number: FR-BRISTOL-MYERS SQUIBB COMPANY-19102177

PATIENT
  Age: 61 Year
  Sex: Male

DRUGS (3)
  1. GLUCOPHAGE TABS 500 MG [Suspect]
     Indication: DIABETES MELLITUS
     Route: 048
  2. PERINDOPRIL [Suspect]
     Indication: HYPERTENSION
     Dosage: 4MG TABLET
     Route: 048
     Dates: start: 20130530
  3. DAONIL [Suspect]
     Indication: DIABETES MELLITUS
     Route: 048

REACTIONS (4)
  - Renal failure acute [Fatal]
  - Bradycardia [Fatal]
  - Circulatory collapse [Fatal]
  - Cardiac arrest [Fatal]
